FAERS Safety Report 6160538-6 (Version None)
Quarter: 2009Q2

REPORT INFORMATION
  Report Type: 
  Country: None (occurrence: None)
  Receive Date: 20090415
  Receipt Date: 20090415
  Transmission Date: 20091009
  Serious: Yes (Hospitalization)
  Sender: FDA-Public Use
  Company Number: None

PATIENT
  Age: 35 Year
  Sex: Male

DRUGS (2)
  1. ULTRAM [Suspect]
     Dosage: 1-2 TABS Q8 HRS PO
     Route: 048
  2. ZOLOFT [Suspect]
     Dosage: 1 TAB DAILY PO
     Route: 048

REACTIONS (1)
  - SEROTONIN SYNDROME [None]
